FAERS Safety Report 9821952 (Version 2)
Quarter: 2014Q1

REPORT INFORMATION
  Report Type: Spontaneous
  Country: US (occurrence: US)
  Receive Date: 20140116
  Receipt Date: 20140212
  Transmission Date: 20141002
  Serious: Yes (Death)
  Sender: FDA-Public Use
  Company Number: US-BRISTOL-MYERS SQUIBB COMPANY-20029005

PATIENT
  Age: 65 Year
  Sex: Female
  Weight: 73.7 kg

DRUGS (4)
  1. BYETTA [Suspect]
     Dates: start: 20110101, end: 20120705
  2. JANUVIA [Suspect]
  3. JANUMET [Suspect]
  4. VICTOZA [Suspect]
     Dates: start: 20120101, end: 20120705

REACTIONS (1)
  - Pancreatic carcinoma [Fatal]
